APPROVED DRUG PRODUCT: DOXAZOSIN MESYLATE
Active Ingredient: DOXAZOSIN MESYLATE
Strength: EQ 8MG BASE
Dosage Form/Route: TABLET;ORAL
Application: A209013 | Product #004 | TE Code: AB
Applicant: SOMERSET THERAPEUTICS LLC
Approved: Apr 17, 2018 | RLD: No | RS: No | Type: RX